FAERS Safety Report 22240568 (Version 1)
Quarter: 2023Q2

REPORT INFORMATION
  Report Type: Report from Study
  Country: GB (occurrence: GB)
  Receive Date: 20230421
  Receipt Date: 20230421
  Transmission Date: 20230721
  Serious: Yes (Other)
  Sender: FDA-Public Use
  Company Number: GB-BAUSCH-BL-2023-006386

PATIENT
  Age: 66 Year
  Sex: Male

DRUGS (1)
  1. BRODALUMAB [Suspect]
     Active Substance: BRODALUMAB
     Indication: Psoriasis
     Dosage: 210 MG AT WEEKS 0, 1, AND 2 FOLLOWED BY EVERY 2 WEEKS (210 MG,1 IN 2 WK)
     Route: 058
     Dates: start: 20221013

REACTIONS (5)
  - Ear infection [Unknown]
  - COVID-19 [Not Recovered/Not Resolved]
  - Psoriasis [Unknown]
  - Acne [Unknown]
  - Drug ineffective [Unknown]

NARRATIVE: CASE EVENT DATE: 20230410
